FAERS Safety Report 8194048-1 (Version None)
Quarter: 2012Q1

REPORT INFORMATION
  Report Type: 
  Country: None (occurrence: None)
  Receive Date: 20120308
  Receipt Date: 20120305
  Transmission Date: 20120608
  Serious: Yes (Hospitalization)
  Sender: FDA-Public Use
  Company Number: FR-MERCK-1203USA00834

PATIENT
  Age: 88 Year
  Sex: Male

DRUGS (3)
  1. TAMSULOSIN HYDROCHLORIDE [Concomitant]
     Route: 048
  2. BIOCIDAN [Concomitant]
     Dosage: STRENGTH 0.1 MG
     Route: 047
  3. NOROXIN [Suspect]
     Indication: URINARY TRACT INFECTION
     Route: 048
     Dates: start: 20110901, end: 20110903

REACTIONS (6)
  - AGITATION [None]
  - PHLEBITIS [None]
  - DISORIENTATION [None]
  - DEEP VEIN THROMBOSIS [None]
  - AGGRESSION [None]
  - ABNORMAL BEHAVIOUR [None]
